FAERS Safety Report 19880216 (Version 1)
Quarter: 2021Q3

REPORT INFORMATION
  Report Type: Report from Study
  Country: None (occurrence: US)
  Receive Date: 20210925
  Receipt Date: 20210925
  Transmission Date: 20211014
  Serious: Yes (Hospitalization, Other)
  Sender: FDA-Public Use
  Company Number: US-ABBVIE-21P-163-4093920-00

PATIENT
  Sex: Male
  Weight: 11.4 kg

DRUGS (87)
  1. SYNAGIS [Suspect]
     Active Substance: PALIVIZUMAB
     Indication: BRONCHOPULMONARY DYSPLASIA
     Dosage: 100MG/1ML EVERY 28 DAYS
     Route: 030
  2. SYNAGIS [Suspect]
     Active Substance: PALIVIZUMAB
     Indication: DYSPHAGIA
     Dosage: 100MG/1ML EVERY 28 DAYS
     Route: 030
  3. SYNAGIS [Suspect]
     Active Substance: PALIVIZUMAB
     Indication: TRACHEOSTOMY
     Route: 065
  4. SYNAGIS [Suspect]
     Active Substance: PALIVIZUMAB
     Indication: CHRONIC RESPIRATORY DISEASE
     Route: 065
  5. SYNAGIS [Suspect]
     Active Substance: PALIVIZUMAB
     Indication: TRACHEOSTOMY
     Route: 065
  6. SYNAGIS [Suspect]
     Active Substance: PALIVIZUMAB
     Indication: LUNG DISORDER
     Route: 065
  7. SYNAGIS [Suspect]
     Active Substance: PALIVIZUMAB
     Indication: HYPOXIC-ISCHAEMIC ENCEPHALOPATHY
     Route: 065
  8. ALBUTEROL SULFATE HFA [Concomitant]
     Active Substance: ALBUTEROL SULFATE
     Indication: PRODUCT USED FOR UNKNOWN INDICATION
     Route: 065
  9. SYNAGIS [Suspect]
     Active Substance: PALIVIZUMAB
     Indication: LARYNGEAL STENOSIS
     Route: 065
  10. SYNAGIS [Suspect]
     Active Substance: PALIVIZUMAB
     Indication: GRANULOMATOUS DERMATITIS
     Route: 065
  11. SYNAGIS [Suspect]
     Active Substance: PALIVIZUMAB
     Indication: NEONATAL SEIZURE
     Route: 065
  12. SYNAGIS [Suspect]
     Active Substance: PALIVIZUMAB
     Indication: CHRONIC RESPIRATORY DISEASE
     Route: 065
  13. SYNAGIS [Suspect]
     Active Substance: PALIVIZUMAB
     Indication: NEONATAL SEIZURE
     Route: 065
  14. SYNAGIS [Suspect]
     Active Substance: PALIVIZUMAB
     Indication: HYPOXIC-ISCHAEMIC ENCEPHALOPATHY
     Route: 065
  15. SYNAGIS [Suspect]
     Active Substance: PALIVIZUMAB
     Indication: NEONATAL SEIZURE
     Route: 065
  16. SYNAGIS [Suspect]
     Active Substance: PALIVIZUMAB
     Indication: LARYNGEAL STENOSIS
     Route: 065
  17. SYNAGIS [Suspect]
     Active Substance: PALIVIZUMAB
     Indication: GRANULOMATOUS DERMATITIS
     Route: 065
  18. LEVETIRACETAM. [Concomitant]
     Active Substance: LEVETIRACETAM
     Indication: PRODUCT USED FOR UNKNOWN INDICATION
     Route: 065
  19. SYNAGIS [Suspect]
     Active Substance: PALIVIZUMAB
     Indication: LARYNGEAL STENOSIS
     Route: 065
  20. SYNAGIS [Suspect]
     Active Substance: PALIVIZUMAB
     Indication: NEONATAL SEIZURE
     Route: 065
  21. SYNAGIS [Suspect]
     Active Substance: PALIVIZUMAB
     Indication: HYPOXIC-ISCHAEMIC ENCEPHALOPATHY
     Route: 065
  22. SYNAGIS [Suspect]
     Active Substance: PALIVIZUMAB
     Indication: DYSPHAGIA
     Route: 065
  23. SYNAGIS [Suspect]
     Active Substance: PALIVIZUMAB
     Indication: LARYNGEAL STENOSIS
     Route: 065
  24. SYNAGIS [Suspect]
     Active Substance: PALIVIZUMAB
     Indication: BRONCHOPULMONARY DYSPLASIA
     Route: 065
  25. SYNAGIS [Suspect]
     Active Substance: PALIVIZUMAB
     Indication: NEONATAL SEIZURE
     Route: 065
  26. SYNAGIS [Suspect]
     Active Substance: PALIVIZUMAB
     Indication: HYPOXIC-ISCHAEMIC ENCEPHALOPATHY
     Route: 065
  27. SYNAGIS [Suspect]
     Active Substance: PALIVIZUMAB
     Indication: CHRONIC RESPIRATORY DISEASE
     Route: 065
  28. SYNAGIS [Suspect]
     Active Substance: PALIVIZUMAB
     Indication: DYSPHAGIA
     Route: 065
  29. SYNAGIS [Suspect]
     Active Substance: PALIVIZUMAB
     Indication: HYPOXIC-ISCHAEMIC ENCEPHALOPATHY
     Route: 065
  30. SYNAGIS [Suspect]
     Active Substance: PALIVIZUMAB
     Indication: LARYNGEAL STENOSIS
     Dosage: 100MG/1ML EVERY 28 DAYS
     Route: 030
  31. SYNAGIS [Suspect]
     Active Substance: PALIVIZUMAB
     Indication: GRANULOMATOUS DERMATITIS
     Route: 065
  32. SYNAGIS [Suspect]
     Active Substance: PALIVIZUMAB
     Indication: HYPOXIC-ISCHAEMIC ENCEPHALOPATHY
     Route: 065
  33. SYNAGIS [Suspect]
     Active Substance: PALIVIZUMAB
     Indication: LARYNGEAL STENOSIS
     Route: 065
  34. SYNAGIS [Suspect]
     Active Substance: PALIVIZUMAB
     Indication: CHRONIC RESPIRATORY DISEASE
     Route: 065
  35. SYNAGIS [Suspect]
     Active Substance: PALIVIZUMAB
     Indication: HYPOXIC-ISCHAEMIC ENCEPHALOPATHY
     Route: 065
  36. SYNAGIS [Suspect]
     Active Substance: PALIVIZUMAB
     Indication: LUNG DISORDER
     Route: 065
  37. SYNAGIS [Suspect]
     Active Substance: PALIVIZUMAB
     Indication: NEONATAL SEIZURE
     Route: 065
  38. SYNAGIS [Suspect]
     Active Substance: PALIVIZUMAB
     Indication: TRACHEOSTOMY
     Route: 065
  39. SYNAGIS [Suspect]
     Active Substance: PALIVIZUMAB
     Indication: LUNG DISORDER
     Route: 065
  40. SYNAGIS [Suspect]
     Active Substance: PALIVIZUMAB
     Indication: NEONATAL SEIZURE
     Route: 065
  41. POLY?VI?SOL/IRON [Concomitant]
     Indication: PRODUCT USED FOR UNKNOWN INDICATION
     Route: 065
  42. SYNAGIS [Suspect]
     Active Substance: PALIVIZUMAB
     Indication: TRACHEOSTOMY
     Dosage: 100MG/1ML EVERY 28 DAYS
     Route: 030
  43. SYNAGIS [Suspect]
     Active Substance: PALIVIZUMAB
     Indication: LUNG DISORDER
     Route: 065
  44. SYNAGIS [Suspect]
     Active Substance: PALIVIZUMAB
     Indication: LUNG DISORDER
     Route: 065
  45. SYNAGIS [Suspect]
     Active Substance: PALIVIZUMAB
     Indication: GRANULOMATOUS DERMATITIS
     Route: 065
  46. SYNAGIS [Suspect]
     Active Substance: PALIVIZUMAB
     Indication: TRACHEOSTOMY
     Route: 065
  47. SYNAGIS [Suspect]
     Active Substance: PALIVIZUMAB
     Indication: GRANULOMATOUS DERMATITIS
     Route: 065
  48. SYNAGIS [Suspect]
     Active Substance: PALIVIZUMAB
     Indication: BRONCHOPULMONARY DYSPLASIA
     Route: 065
  49. SYNAGIS [Suspect]
     Active Substance: PALIVIZUMAB
     Indication: TRACHEOSTOMY
     Route: 065
  50. SYNAGIS [Suspect]
     Active Substance: PALIVIZUMAB
     Indication: LARYNGEAL STENOSIS
     Route: 065
  51. SYNAGIS [Suspect]
     Active Substance: PALIVIZUMAB
     Indication: GRANULOMATOUS DERMATITIS
     Route: 065
  52. SYNAGIS [Suspect]
     Active Substance: PALIVIZUMAB
     Indication: BRONCHOPULMONARY DYSPLASIA
     Route: 065
  53. SYNAGIS [Suspect]
     Active Substance: PALIVIZUMAB
     Indication: CHRONIC RESPIRATORY DISEASE
     Route: 065
  54. SYNAGIS [Suspect]
     Active Substance: PALIVIZUMAB
     Indication: GRANULOMATOUS DERMATITIS
     Dosage: 100MG/1ML EVERY 28 DAYS
     Route: 030
  55. SYNAGIS [Suspect]
     Active Substance: PALIVIZUMAB
     Indication: CHRONIC RESPIRATORY DISEASE
     Dosage: 100MG/1ML EVERY 28 DAYS
     Route: 030
  56. SYNAGIS [Suspect]
     Active Substance: PALIVIZUMAB
     Indication: NEONATAL SEIZURE
     Dosage: 100MG/1ML EVERY 28 DAYS
     Route: 030
  57. SYNAGIS [Suspect]
     Active Substance: PALIVIZUMAB
     Indication: BRONCHOPULMONARY DYSPLASIA
     Route: 065
  58. SYNAGIS [Suspect]
     Active Substance: PALIVIZUMAB
     Indication: CHRONIC RESPIRATORY DISEASE
     Route: 065
  59. SYNAGIS [Suspect]
     Active Substance: PALIVIZUMAB
     Indication: BRONCHOPULMONARY DYSPLASIA
     Route: 065
  60. SYNAGIS [Suspect]
     Active Substance: PALIVIZUMAB
     Indication: GRANULOMATOUS DERMATITIS
     Route: 065
  61. SYNAGIS [Suspect]
     Active Substance: PALIVIZUMAB
     Indication: BRONCHOPULMONARY DYSPLASIA
     Route: 065
  62. SYNAGIS [Suspect]
     Active Substance: PALIVIZUMAB
     Indication: BRONCHOPULMONARY DYSPLASIA
     Route: 065
  63. SYNAGIS [Suspect]
     Active Substance: PALIVIZUMAB
     Indication: CHRONIC RESPIRATORY DISEASE
     Route: 065
  64. SYNAGIS [Suspect]
     Active Substance: PALIVIZUMAB
     Indication: HYPOXIC-ISCHAEMIC ENCEPHALOPATHY
     Route: 065
  65. SODIUM CHLORIDE. [Concomitant]
     Active Substance: SODIUM CHLORIDE
     Indication: PRODUCT USED FOR UNKNOWN INDICATION
     Route: 065
  66. SYNAGIS [Suspect]
     Active Substance: PALIVIZUMAB
     Indication: HYPOXIC-ISCHAEMIC ENCEPHALOPATHY
     Dosage: 100MG/1ML EVERY 28 DAYS
     Route: 030
  67. SYNAGIS [Suspect]
     Active Substance: PALIVIZUMAB
     Indication: NEONATAL SEIZURE
     Route: 065
  68. SYNAGIS [Suspect]
     Active Substance: PALIVIZUMAB
     Indication: DYSPHAGIA
     Route: 065
  69. SYNAGIS [Suspect]
     Active Substance: PALIVIZUMAB
     Indication: LARYNGEAL STENOSIS
     Route: 065
  70. SYNAGIS [Suspect]
     Active Substance: PALIVIZUMAB
     Indication: GRANULOMATOUS DERMATITIS
     Route: 065
  71. SYNAGIS [Suspect]
     Active Substance: PALIVIZUMAB
     Indication: BRONCHOPULMONARY DYSPLASIA
     Route: 065
  72. SYNAGIS [Suspect]
     Active Substance: PALIVIZUMAB
     Indication: DYSPHAGIA
     Route: 065
  73. SYNAGIS [Suspect]
     Active Substance: PALIVIZUMAB
     Indication: TRACHEOSTOMY
     Route: 065
  74. SYNAGIS [Suspect]
     Active Substance: PALIVIZUMAB
     Indication: LARYNGEAL STENOSIS
     Route: 065
  75. SYNAGIS [Suspect]
     Active Substance: PALIVIZUMAB
     Indication: DYSPHAGIA
     Route: 065
  76. SYNAGIS [Suspect]
     Active Substance: PALIVIZUMAB
     Indication: DYSPHAGIA
     Route: 065
  77. GABAPENTIN. [Concomitant]
     Active Substance: GABAPENTIN
     Indication: PRODUCT USED FOR UNKNOWN INDICATION
     Route: 065
  78. FLOVENT HFA [Concomitant]
     Active Substance: FLUTICASONE PROPIONATE
     Indication: PRODUCT USED FOR UNKNOWN INDICATION
     Route: 065
  79. SYNAGIS [Suspect]
     Active Substance: PALIVIZUMAB
     Indication: LUNG DISORDER
     Dosage: 100MG/1ML EVERY 28 DAYS
     Route: 030
  80. SYNAGIS [Suspect]
     Active Substance: PALIVIZUMAB
     Indication: LUNG DISORDER
     Route: 065
  81. SYNAGIS [Suspect]
     Active Substance: PALIVIZUMAB
     Indication: DYSPHAGIA
     Route: 065
  82. SYNAGIS [Suspect]
     Active Substance: PALIVIZUMAB
     Indication: TRACHEOSTOMY
     Route: 065
  83. SYNAGIS [Suspect]
     Active Substance: PALIVIZUMAB
     Indication: DYSPHAGIA
     Route: 065
  84. SYNAGIS [Suspect]
     Active Substance: PALIVIZUMAB
     Indication: LUNG DISORDER
     Route: 065
  85. SYNAGIS [Suspect]
     Active Substance: PALIVIZUMAB
     Indication: CHRONIC RESPIRATORY DISEASE
     Route: 065
  86. SYNAGIS [Suspect]
     Active Substance: PALIVIZUMAB
     Indication: LUNG DISORDER
     Route: 065
  87. SYNAGIS [Suspect]
     Active Substance: PALIVIZUMAB
     Indication: TRACHEOSTOMY
     Route: 065

REACTIONS (1)
  - Seizure [Unknown]
